FAERS Safety Report 15110249 (Version 1)
Quarter: 2018Q3

REPORT INFORMATION
  Report Type: Spontaneous
  Country: IT (occurrence: IT)
  Receive Date: 20180705
  Receipt Date: 20180705
  Transmission Date: 20181010
  Serious: Yes (Other)
  Sender: FDA-Public Use
  Company Number: IT-PFIZER INC-2018269421

PATIENT
  Age: 48 Year
  Sex: Female

DRUGS (3)
  1. XANAX [Suspect]
     Active Substance: ALPRAZOLAM
     Dosage: 2 DF, TOTAL
     Route: 048
     Dates: start: 20180512, end: 20180512
  2. NEBIVOLOL. [Suspect]
     Active Substance: NEBIVOLOL
     Dosage: 40 MG, TOTAL
     Route: 048
     Dates: start: 20180512, end: 20180512
  3. LIBRIUM [Suspect]
     Active Substance: CHLORDIAZEPOXIDE HYDROCHLORIDE
     Dosage: 4 DF, TOTAL
     Route: 048
     Dates: start: 20180512, end: 20180512

REACTIONS (2)
  - Bradycardia [Recovering/Resolving]
  - Drug abuse [Recovering/Resolving]

NARRATIVE: CASE EVENT DATE: 20180512
